FAERS Safety Report 9546799 (Version 3)
Quarter: 2014Q2

REPORT INFORMATION
  Report Type: Report from Study
  Country: GB (occurrence: GB)
  Receive Date: 20130924
  Receipt Date: 20140519
  Transmission Date: 20141212
  Serious: Yes (Other)
  Sender: FDA-Public Use
  Company Number: GB-ROCHE-1276488

PATIENT
  Age: 67 Year
  Sex: Male
  Weight: 106.1 kg

DRUGS (2)
  1. VEMURAFENIB [Suspect]
     Indication: METASTATIC MALIGNANT MELANOMA
     Dosage: DATE OF LAST DOSE PRIOR TO SAE:  25/OCT/2012
     Route: 048
     Dates: start: 20120119, end: 20121025
  2. IPILIMUMAB [Concomitant]
     Route: 065
     Dates: end: 201301

REACTIONS (1)
  - Colon cancer [Recovered/Resolved]
